FAERS Safety Report 5563518-4 (Version None)
Quarter: 2007Q4

REPORT INFORMATION
  Report Type: 
  Country: None (occurrence: None)
  Receive Date: 20071217
  Receipt Date: 20070614
  Transmission Date: 20080405
  Serious: No
  Sender: FDA-Public Use
  Company Number: US-ASTRAZENECA-2007UW14235

PATIENT
  Age: 63 Year
  Sex: Male
  Weight: 78 kg

DRUGS (14)
  1. CRESTOR [Suspect]
     Indication: BLOOD CHOLESTEROL INCREASED
     Route: 048
     Dates: start: 20070529
  2. PLAVIX [Concomitant]
  3. FUROSEMIDE [Concomitant]
  4. AVANDIA [Concomitant]
  5. SYNTHROID [Concomitant]
  6. DIGOXIN [Concomitant]
  7. CORDARONE [Concomitant]
  8. DIOVAN [Concomitant]
  9. K-DUR 10 [Concomitant]
  10. COUMADIN [Concomitant]
  11. TOPROL-XL [Concomitant]
     Route: 048
  12. MULTIPLE VITAMIN [Concomitant]
  13. VITAMIN B COMPLEXES [Concomitant]
  14. CALCIUM [Concomitant]

REACTIONS (1)
  - FAECES DISCOLOURED [None]
